FAERS Safety Report 9109731 (Version 1)
Quarter: 2013Q1

REPORT INFORMATION
  Report Type: Other
  Country: HU (occurrence: HU)
  Receive Date: 20130222
  Receipt Date: 20130222
  Transmission Date: 20140127
  Serious: Yes (Other)
  Sender: FDA-Public Use
  Company Number: HU-BRISTOL-MYERS SQUIBB COMPANY-17372582

PATIENT
  Age: 84 Year
  Sex: Female

DRUGS (1)
  1. DASATINIB [Suspect]
     Indication: CHRONIC MYELOID LEUKAEMIA

REACTIONS (3)
  - Pleural effusion [Unknown]
  - Cardiac failure congestive [Unknown]
  - Adams-Stokes syndrome [Unknown]
